FAERS Safety Report 20883779 (Version 1)
Quarter: 2022Q2

REPORT INFORMATION
  Report Type: Spontaneous
  Country: US (occurrence: US)
  Receive Date: 20220527
  Receipt Date: 20220527
  Transmission Date: 20220720
  Serious: Yes (Life-Threatening, Other)
  Sender: FDA-Public Use
  Company Number: US-RECKITT BENCKISER HEALTHCARE INT LIMITED-RB-090127-2022

PATIENT
  Age: 42 Year
  Sex: Male

DRUGS (1)
  1. BENZOCAINE [Suspect]
     Active Substance: BENZOCAINE
     Indication: Local anaesthesia
     Dosage: UNK
     Route: 061

REACTIONS (4)
  - Cyanosis central [Recovered/Resolved]
  - Mental status changes [Recovered/Resolved]
  - Oxygen saturation decreased [Recovered/Resolved]
  - Methaemoglobinaemia [Recovered/Resolved]
